FAERS Safety Report 22046233 (Version 15)
Quarter: 2025Q4

REPORT INFORMATION
  Report Type: Spontaneous
  Country: US (occurrence: US)
  Receive Date: 20230228
  Receipt Date: 20251017
  Transmission Date: 20260117
  Serious: Yes (Hospitalization)
  Sender: PFIZER
  Company Number: US-PFIZER INC-PV202300035706

PATIENT
  Age: 77 Year
  Sex: Female

DRUGS (2)
  1. IBRANCE [Suspect]
     Active Substance: PALBOCICLIB
     Indication: Breast cancer female
     Dosage: 125 MG, CYCLIC (TAKE 1 PILL DAILY DAY 1-21 OF 28 DAY CYCLE WITH OR WITHOUT FOOD)
     Route: 048
  2. IBRANCE [Suspect]
     Active Substance: PALBOCICLIB
     Dosage: 100 MG, CYCLIC (TAKE 1 PILL DAILY DAY 1-21 OF 28 DAY CYCLE WITH OR WITHOUT FOOD)
     Route: 048

REACTIONS (3)
  - White blood cell count abnormal [Unknown]
  - Alopecia [Unknown]
  - Diarrhoea [Unknown]
